FAERS Safety Report 23327734 (Version 1)
Quarter: 2023Q4

REPORT INFORMATION
  Report Type: Spontaneous
  Country: CA (occurrence: CA)
  Receive Date: 20231221
  Receipt Date: 20231221
  Transmission Date: 20240110
  Serious: Yes (Other)
  Sender: FDA-Public Use
  Company Number: CA-FreseniusKabi-FK202320898

PATIENT
  Sex: Female

DRUGS (7)
  1. DIPHENHYDRAMINE [Suspect]
     Active Substance: DIPHENHYDRAMINE
     Indication: Product used for unknown indication
     Route: 065
  2. TYLENOL [Suspect]
     Active Substance: ACETAMINOPHEN
     Indication: Product used for unknown indication
     Dosage: FORM OF ADMIN. NOT SPECIFIED?ROUTE OF ADMIN. UNKNOWN ( UNK )
  3. BENLYSTA [Suspect]
     Active Substance: BELIMUMAB
     Indication: Systemic lupus erythematosus
     Dosage: FORM OF ADMIN. NOT SPECIFIED?ROUTE OF ADMIN. UNKNOWN ( UNK )
  4. BENLYSTA [Suspect]
     Active Substance: BELIMUMAB
     Indication: Product used for unknown indication
  5. HYDROCORTISONE [Suspect]
     Active Substance: HYDROCORTISONE
     Indication: Product used for unknown indication
     Dosage: FORM OF ADMIN. TABLET (DELAYED AND EXTENDED RELEASE)?ROUTE OF ADMIN. UNKNOWN ( UNK )
  6. HYDROXYCHLOROQUINE [Suspect]
     Active Substance: HYDROXYCHLOROQUINE
     Indication: Product used for unknown indication
     Dosage: ROUTE OF ADMIN. UNKNOWN ( UNK )
  7. MYCOPHENOLIC ACID [Suspect]
     Active Substance: MYCOPHENOLIC ACID
     Indication: Product used for unknown indication
     Dosage: FORM OF ADMIN. NOT SPECIFIED?ROUTE OF ADMIN. ORAL

REACTIONS (4)
  - Cerebrospinal fluid leakage [Unknown]
  - Head discomfort [Unknown]
  - Headache [Unknown]
  - Peripheral swelling [Unknown]
